FAERS Safety Report 23301343 (Version 2)
Quarter: 2024Q1

REPORT INFORMATION
  Report Type: Spontaneous
  Country: AE (occurrence: AE)
  Receive Date: 20231215
  Receipt Date: 20240123
  Transmission Date: 20240410
  Serious: Yes (Other)
  Sender: FDA-Public Use
  Company Number: None

PATIENT
  Age: 42 Year
  Sex: Male

DRUGS (1)
  1. CAPECITABINE [Suspect]
     Active Substance: CAPECITABINE
     Indication: Colorectal cancer stage III
     Dosage: BID, AS SALVAGE CHEMOTHERAPY?DAILY DOSE: 3000 MILLIGRAM
     Route: 048

REACTIONS (3)
  - Anaphylactic reaction [Recovered/Resolved]
  - Angioedema [Recovered/Resolved]
  - Kounis syndrome [Recovered/Resolved]
